FAERS Safety Report 22193158 (Version 1)
Quarter: 2023Q2

REPORT INFORMATION
  Report Type: Spontaneous
  Country: KR (occurrence: KR)
  Receive Date: 20230410
  Receipt Date: 20230410
  Transmission Date: 20230721
  Serious: Yes (Hospitalization)
  Sender: FDA-Public Use
  Company Number: KR-OTSUKA-2023_008915

PATIENT
  Age: 4 Decade
  Sex: Female

DRUGS (1)
  1. DACOGEN [Suspect]
     Active Substance: DECITABINE
     Indication: Myelodysplastic syndrome
     Dosage: 5 DAY SCHEDULE (30 MG,1 IN 1 D)
     Route: 042
     Dates: start: 20230210, end: 20230214

REACTIONS (3)
  - Hospitalisation [Unknown]
  - Neutrophil count decreased [Unknown]
  - Tooth disorder [Unknown]

NARRATIVE: CASE EVENT DATE: 20230326
